FAERS Safety Report 6740311-8 (Version None)
Quarter: 2010Q2

REPORT INFORMATION
  Report Type: 
  Country: None (occurrence: None)
  Receive Date: 20100525
  Receipt Date: 20100514
  Transmission Date: 20101027
  Serious: Yes (Hospitalization)
  Sender: FDA-Public Use
  Company Number: US-JNJFOC-20100505845

PATIENT
  Sex: Female

DRUGS (1)
  1. DOXIL [Suspect]
     Indication: DRUG USE FOR UNKNOWN INDICATION
     Route: 065

REACTIONS (2)
  - HOSPITALISATION [None]
  - INTERSTITIAL LUNG DISEASE [None]
